FAERS Safety Report 23436630 (Version 3)
Quarter: 2024Q2

REPORT INFORMATION
  Report Type: Spontaneous
  Country: US (occurrence: US)
  Receive Date: 20240124
  Receipt Date: 20240620
  Transmission Date: 20240716
  Serious: Yes (Hospitalization, Disabling, Other)
  Sender: FDA-Public Use
  Company Number: US-SA-SAC20240120000284

PATIENT
  Age: 26 Year
  Sex: Female

DRUGS (1)
  1. REZUROCK [Suspect]
     Active Substance: BELUMOSUDIL
     Indication: Chronic graft versus host disease
     Dosage: 200 MG, QD
     Route: 048
     Dates: start: 20221026

REACTIONS (22)
  - Pneumothorax [Unknown]
  - Graft versus host disease [Unknown]
  - Myalgia [Unknown]
  - Tendon pain [Unknown]
  - Impaired work ability [Unknown]
  - Condition aggravated [Unknown]
  - Anxiety [Recovering/Resolving]
  - Eating disorder [Unknown]
  - Pain [Recovering/Resolving]
  - Flatulence [Unknown]
  - Chest pain [Unknown]
  - Depressed mood [Unknown]
  - Loss of personal independence in daily activities [Unknown]
  - Tooth disorder [Unknown]
  - Fine motor skill dysfunction [Unknown]
  - Skin hypertrophy [Unknown]
  - Nail disorder [Unknown]
  - Skin discolouration [Unknown]
  - Arthralgia [Unknown]
  - Asthenia [Unknown]
  - Influenza [Unknown]
  - Cough [Unknown]
